FAERS Safety Report 25385126 (Version 1)
Quarter: 2025Q2

REPORT INFORMATION
  Report Type: Spontaneous
  Country: CZ (occurrence: CZ)
  Receive Date: 20250602
  Receipt Date: 20250602
  Transmission Date: 20250716
  Serious: Yes (Life-Threatening, Hospitalization, Other)
  Sender: MERCK SHARP & DOHME LLC
  Company Number: None

PATIENT
  Age: 44 Year
  Sex: Female
  Weight: 79 kg

DRUGS (5)
  1. KEYTRUDA [Suspect]
     Active Substance: PEMBROLIZUMAB
     Indication: Breast cancer female
     Dosage: DOSAGE: 25 MG/ML PEMBROLIZUMAB 25MG/ML - DOSE 200MG/8ML EVERY 3 WEEKS (1ST TO 4TH CYCLE + PACLITA...
     Route: 042
     Dates: start: 20240925, end: 20250417
  2. Granegis 2mg [Concomitant]
     Indication: Vomiting
     Dosage: ONCE A DAY, FOR VOMITING
     Route: 048
  3. Detralex 500mg [Concomitant]
     Dosage: 2-0-0, 1 TABLET CONTAINS 500MG OF ACTIVE SUBSTANCE ?1 DOSE IS 1000MG
     Route: 048
  4. NADROPARIN CALCIUM [Concomitant]
     Active Substance: NADROPARIN CALCIUM
     Route: 058
  5. Imodium 2mg [Concomitant]
     Indication: Diarrhoea
     Dosage: 2-2-2, FOR DIARRHOEA, 1 TABLET CONTAINS 2MG
     Route: 048

REACTIONS (1)
  - Immune-mediated enterocolitis [Recovering/Resolving]

NARRATIVE: CASE EVENT DATE: 20250502
